FAERS Safety Report 8885507 (Version 1)
Quarter: 2012Q4

REPORT INFORMATION
  Report Type: 
  Country: JP (occurrence: JP)
  Receive Date: 20121105
  Receipt Date: 20121105
  Transmission Date: 20130627
  Serious: Yes (Hospitalization)
  Sender: FDA-Public Use
  Company Number: JP-PFIZER INC-2012274104

PATIENT

DRUGS (1)
  1. JZOLOFT [Suspect]
     Dosage: 50 mg, 1x/day, in the evening
     Route: 048

REACTIONS (2)
  - Limb injury [Unknown]
  - Infection [Unknown]
